FAERS Safety Report 11286542 (Version 1)
Quarter: 2015Q3

REPORT INFORMATION
  Report Type: Spontaneous
  Country: US (occurrence: None)
  Receive Date: 20150720
  Receipt Date: 20150720
  Transmission Date: 20151125
  Serious: No
  Sender: FDA-Public Use
  Company Number: None

PATIENT
  Age: 74 Year
  Sex: Male
  Weight: 104.33 kg

DRUGS (6)
  1. DULERA INHALER [Concomitant]
  2. LIPITOR [Concomitant]
     Active Substance: ATORVASTATIN CALCIUM
  3. SINGULAIR [Concomitant]
     Active Substance: MONTELUKAST SODIUM
  4. PRADAXA [Suspect]
     Active Substance: DABIGATRAN ETEXILATE MESYLATE
     Indication: ATRIAL FIBRILLATION
     Dosage: 75 MG 1 CAP TWICE DAILY MOUTH
     Route: 048
     Dates: start: 20120101, end: 20150611
  5. FINASTERIDE. [Concomitant]
     Active Substance: FINASTERIDE
  6. ASPIRIN. [Concomitant]
     Active Substance: ASPIRIN

REACTIONS (3)
  - Contusion [None]
  - Laceration [None]
  - Blood blister [None]

NARRATIVE: CASE EVENT DATE: 201206
